FAERS Safety Report 10145047 (Version 2)
Quarter: 2014Q2

REPORT INFORMATION
  Report Type: Spontaneous
  Country: BR (occurrence: BR)
  Receive Date: 20140501
  Receipt Date: 20140507
  Transmission Date: 20141212
  Serious: Yes (Hospitalization, Other)
  Sender: FDA-Public Use
  Company Number: BR-ROCHE-1391746

PATIENT
  Sex: Female
  Weight: 88.5 kg

DRUGS (7)
  1. VALIUM [Suspect]
     Indication: ANXIETY
     Dosage: HALF TABLET TAKEN AT NIGHT
     Route: 048
     Dates: start: 2004
  2. OMEPRAZOLE [Interacting]
     Indication: PRODUCT USED FOR UNKNOWN INDICATION
     Route: 065
  3. PONDERA [Concomitant]
     Indication: DEPRESSION
     Dosage: TAKEN ONE EIGHTH OF THE TABLET
     Route: 065
     Dates: start: 2004
  4. DUSPATALIN [Concomitant]
     Indication: IRRITABLE BOWEL SYNDROME
  5. CARDILOL [Concomitant]
  6. CITALOR [Concomitant]
  7. PLAGREL [Concomitant]
     Route: 065
     Dates: start: 201404

REACTIONS (7)
  - Breast cancer [Unknown]
  - Lung neoplasm malignant [Unknown]
  - Cerebrovascular accident [Unknown]
  - Drug dependence [Unknown]
  - Dengue fever [Unknown]
  - Nausea [Unknown]
  - Drug interaction [Unknown]
